FAERS Safety Report 23635973 (Version 1)
Quarter: 2024Q1

REPORT INFORMATION
  Report Type: Spontaneous
  Country: BR (occurrence: BR)
  Receive Date: 20240315
  Receipt Date: 20240315
  Transmission Date: 20240409
  Serious: Yes (Hospitalization, Other)
  Sender: FDA-Public Use
  Company Number: BR-MLMSERVICE-2024022848466601

PATIENT
  Age: 57 Year
  Sex: Male

DRUGS (9)
  1. MYCOPHENOLATE MOFETIL [Suspect]
     Active Substance: MYCOPHENOLATE MOFETIL
     Indication: Immunosuppressant drug therapy
     Dosage: DAILY
  2. TACROLIMUS [Suspect]
     Active Substance: TACROLIMUS
     Indication: Immunosuppressant drug therapy
     Dosage: DAILY
  3. CITALOPRAM [Concomitant]
     Active Substance: CITALOPRAM HYDROBROMIDE
     Dosage: DAILY
  4. CLONIDINE [Concomitant]
     Active Substance: CLONIDINE
     Dosage: DAILY
  5. METFORMIN [Concomitant]
     Active Substance: METFORMIN HYDROCHLORIDE
     Dosage: DAILY
  6. ASPIRIN [Concomitant]
     Active Substance: ASPIRIN
     Dosage: DAILY
  7. OMEPRAZOLE [Concomitant]
     Active Substance: OMEPRAZOLE
     Dosage: DAILY
  8. CLOPIDOGREL [Concomitant]
     Active Substance: CLOPIDOGREL BISULFATE
     Dosage: DAILY
  9. ATORVASTATIN [Concomitant]
     Active Substance: ATORVASTATIN
     Dosage: DAILY

REACTIONS (7)
  - Oral fungal infection [Recovered/Resolved]
  - Fungal skin infection [Recovered/Resolved]
  - Central nervous system fungal infection [Recovered/Resolved]
  - Eye haemorrhage [Recovered/Resolved]
  - Disseminated cryptococcosis [Recovered/Resolved]
  - Pneumonia cryptococcal [Recovered/Resolved]
  - Thrombocytopenia [Recovered/Resolved]
